FAERS Safety Report 22172880 (Version 1)
Quarter: 2023Q2

REPORT INFORMATION
  Report Type: Report from Study
  Country: TW (occurrence: TW)
  Receive Date: 20230404
  Receipt Date: 20230404
  Transmission Date: 20230721
  Serious: Yes (Death, Other)
  Sender: FDA-Public Use
  Company Number: TW-002147023-NVSC2022TW138059

PATIENT
  Sex: Female

DRUGS (7)
  1. ELTROMBOPAG [Interacting]
     Active Substance: ELTROMBOPAG
     Indication: Acute myeloid leukaemia
     Dosage: UNK
     Route: 065
     Dates: start: 20220216
  2. ELTROMBOPAG [Interacting]
     Active Substance: ELTROMBOPAG
     Indication: Transplant dysfunction
     Dosage: 75 MG, QD
     Route: 065
  3. ELTROMBOPAG [Interacting]
     Active Substance: ELTROMBOPAG
     Indication: Transplant failure
  4. ELTROMBOPAG [Interacting]
     Active Substance: ELTROMBOPAG
     Indication: Stem cell transplant
  5. ELTROMBOPAG [Interacting]
     Active Substance: ELTROMBOPAG
     Indication: Myelodysplastic syndrome
  6. ELTROMBOPAG [Interacting]
     Active Substance: ELTROMBOPAG
     Indication: Aplastic anaemia
  7. VORICONAZOLE [Interacting]
     Active Substance: VORICONAZOLE
     Indication: Product used for unknown indication
     Dosage: UNK
     Route: 065

REACTIONS (10)
  - Death [Fatal]
  - Fusarium infection [Unknown]
  - Pancytopenia [Unknown]
  - Myelofibrosis [Unknown]
  - Platelet count decreased [Unknown]
  - Haemoglobin decreased [Unknown]
  - White blood cell count increased [Unknown]
  - Liver function test increased [Unknown]
  - Drug interaction [Unknown]
  - Drug ineffective [Unknown]
